FAERS Safety Report 6744210-7 (Version None)
Quarter: 2010Q2

REPORT INFORMATION
  Report Type: 
  Country: None (occurrence: None)
  Receive Date: 20100527
  Receipt Date: 20100518
  Transmission Date: 20101027
  Serious: Yes (Other)
  Sender: FDA-Public Use
  Company Number: US-SANOFI-AVENTIS-2010SA029098

PATIENT
  Sex: Male
  Weight: 101.6 kg

DRUGS (16)
  1. MULTAQ [Suspect]
     Route: 048
     Dates: start: 20090101
  2. COREG [Concomitant]
  3. SYMBICORT [Concomitant]
     Dosage: DOSE:2 PUFF(S)
  4. LASIX [Concomitant]
  5. OMACOR [Concomitant]
  6. POTASSIUM [Concomitant]
  7. ALL OTHER THERAPEUTIC PRODUCTS [Concomitant]
  8. ASPIRIN [Concomitant]
  9. VITAMIN C [Concomitant]
  10. GARLIC [Concomitant]
  11. MULTI-VITAMINS [Concomitant]
  12. AVAPRO [Concomitant]
  13. ACIPHEX [Concomitant]
  14. LIPITOR [Concomitant]
  15. COUMADIN [Concomitant]
  16. NORVASC [Concomitant]

REACTIONS (4)
  - ATRIAL FIBRILLATION [None]
  - PHOTOSENSITIVITY REACTION [None]
  - RASH VESICULAR [None]
  - SWELLING [None]
